FAERS Safety Report 5856968-X (Version None)
Quarter: 2008Q3

REPORT INFORMATION
  Report Type: 
  Country: None (occurrence: None)
  Receive Date: 20080818
  Receipt Date: 20080519
  Transmission Date: 20090109
  Serious: No
  Sender: FDA-Public Use
  Company Number: WAES 0805USA04090

PATIENT
  Age: 52 Year
  Sex: Male

DRUGS (1)
  1. JANUVIA [Suspect]
     Indication: TYPE 2 DIABETES MELLITUS
     Dosage: PO
     Route: 048
     Dates: start: 20080419, end: 20080512

REACTIONS (3)
  - CHEST DISCOMFORT [None]
  - FEELING ABNORMAL [None]
  - PARAESTHESIA [None]
